FAERS Safety Report 6847545-2 (Version None)
Quarter: 2010Q3

REPORT INFORMATION
  Report Type: 
  Country: None (occurrence: None)
  Receive Date: 20100716
  Receipt Date: 20100707
  Transmission Date: 20110219
  Serious: Yes (Hospitalization)
  Sender: FDA-Public Use
  Company Number: US-ASTRAZENECA-2010SE22520

PATIENT
  Age: 796 Month
  Sex: Female

DRUGS (7)
  1. TOPROL-XL [Suspect]
     Indication: CARDIOVASCULAR DISORDER
     Route: 048
     Dates: start: 20080801
  2. CRESTOR [Suspect]
     Route: 048
     Dates: start: 20100201
  3. ANTIVERT [Suspect]
  4. PREMARIN [Suspect]
  5. EFFEXOR [Concomitant]
  6. EFFEXOR [Concomitant]
  7. LOPRESSOR [Concomitant]

REACTIONS (16)
  - ADVERSE EVENT [None]
  - CARDIAC DISORDER [None]
  - CARDIOMEGALY [None]
  - DIZZINESS [None]
  - DRUG DOSE OMISSION [None]
  - EAR DISCOMFORT [None]
  - GENERAL PHYSICAL HEALTH DETERIORATION [None]
  - ILL-DEFINED DISORDER [None]
  - LOSS OF CONSCIOUSNESS [None]
  - MALAISE [None]
  - MITRAL VALVE PROLAPSE [None]
  - PANIC ATTACK [None]
  - SOMNOLENCE [None]
  - TACHYCARDIA [None]
  - TINNITUS [None]
  - VERTIGO [None]
